FAERS Safety Report 5271312-7 (Version None)
Quarter: 2007Q1

REPORT INFORMATION
  Report Type: 
  Country: None (occurrence: None)
  Receive Date: 20061214
  Receipt Date: 20060918
  Transmission Date: 20070707
  Serious: Yes (Hospitalization, Other)
  Sender: FDA-Public Use
  Company Number: 2006112066

PATIENT
  Sex: Female

DRUGS (3)
  1. BEXTRA [Suspect]
     Dates: start: 20010101, end: 20010531
  2. CELEBREX [Suspect]
     Dates: start: 20001101, end: 20040901
  3. VIOXX [Suspect]
     Dates: start: 20000401, end: 20000901

REACTIONS (2)
  - MYOCARDIAL INFARCTION [None]
  - THROMBOSIS [None]
